FAERS Safety Report 10027915 (Version 1)
Quarter: 2014Q1

REPORT INFORMATION
  Report Type: Spontaneous
  Country: DE (occurrence: DE)
  Receive Date: 20140321
  Receipt Date: 20140321
  Transmission Date: 20141002
  Serious: Yes (Other)
  Sender: FDA-Public Use
  Company Number: GXKR2014DE001273

PATIENT
  Sex: Female

DRUGS (2)
  1. ACETYLSALICYLIC ACID [Suspect]
     Indication: ACUTE MYOCARDIAL INFARCTION
     Dosage: DAILY DOSE: 100 MG MILLGRAM(S) EVERY DAYS
     Dates: start: 20130916
  2. PRASUGREL [Suspect]
     Indication: ACUTE MYOCARDIAL INFARCTION
     Dosage: DAILY DOSE: 10 MG MILLGRAM(S) EVERY DAYS
     Dates: start: 20130916, end: 20140304

REACTIONS (1)
  - Periorbital haematoma [Unknown]
